FAERS Safety Report 6383589-5 (Version None)
Quarter: 2009Q4

REPORT INFORMATION
  Report Type: 
  Country: None (occurrence: None)
  Receive Date: 20091001
  Receipt Date: 20090929
  Transmission Date: 20100525
  Serious: Yes (Death, Other)
  Sender: FDA-Public Use
  Company Number: PHEH2008US11651

PATIENT
  Sex: Male

DRUGS (1)
  1. LAMISIL [Suspect]
     Indication: ONYCHOMYCOSIS

REACTIONS (6)
  - ACUTE MYELOID LEUKAEMIA [None]
  - BLOOD COUNT ABNORMAL [None]
  - DEATH [None]
  - MYELODYSPLASTIC SYNDROME [None]
  - PNEUMONIA [None]
  - THROMBOCYTOPENIA [None]
